FAERS Safety Report 6615285-0 (Version None)
Quarter: 2010Q1

REPORT INFORMATION
  Report Type: 
  Country: None (occurrence: None)
  Receive Date: 20100305
  Receipt Date: 20100302
  Transmission Date: 20100710
  Serious: Yes (Other)
  Sender: FDA-Public Use
  Company Number: US-SANOFI-AVENTIS-2009SA002360

PATIENT
  Age: 63 Year
  Sex: Female
  Weight: 94 kg

DRUGS (8)
  1. MULTAQ [Suspect]
     Route: 048
     Dates: start: 20091016, end: 20091109
  2. ATENOLOL [Concomitant]
     Route: 065
  3. LOTREL [Concomitant]
     Indication: HYPERTENSION
     Dosage: 5-20MG, 2 PER DAY
     Route: 048
  4. SIMVASTATIN [Concomitant]
  5. ASPIRIN [Concomitant]
  6. VITAMINS [Concomitant]
  7. COQ10 [Concomitant]
  8. CALCIUM CITRATE [Concomitant]

REACTIONS (3)
  - ATRIAL FIBRILLATION [None]
  - PALPITATIONS [None]
  - RASH GENERALISED [None]
